FAERS Safety Report 6854125-1 (Version None)
Quarter: 2010Q3

REPORT INFORMATION
  Report Type: 
  Country: None (occurrence: None)
  Receive Date: 20100717
  Receipt Date: 20071226
  Transmission Date: 20110219
  Serious: No
  Sender: FDA-Public Use
  Company Number: US-PFIZER INC-2008000511

PATIENT
  Sex: Male
  Weight: 95 kg

DRUGS (3)
  1. CHANTIX [Suspect]
     Indication: SMOKING CESSATION THERAPY
     Dates: start: 20070630, end: 20071010
  2. ZESTORETIC [Concomitant]
  3. CITALOPRAM HYDROBROMIDE [Concomitant]

REACTIONS (7)
  - DEPRESSION [None]
  - DYSGEUSIA [None]
  - FATIGUE [None]
  - HEADACHE [None]
  - MALAISE [None]
  - SERUM SEROTONIN INCREASED [None]
  - SNEEZING [None]
